FAERS Safety Report 5485126-6 (Version None)
Quarter: 2007Q4

REPORT INFORMATION
  Report Type: 
  Country: None (occurrence: None)
  Receive Date: 20071010
  Receipt Date: 20071010
  Transmission Date: 20080405
  Serious: Yes (Hospitalization)
  Sender: FDA-Public Use
  Company Number: None

PATIENT
  Age: 65 Year
  Sex: Female

DRUGS (1)
  1. DOXIL [Suspect]
     Indication: CHEMOTHERAPY
     Dosage: IV
     Route: 042

REACTIONS (3)
  - CHEST PAIN [None]
  - DYSPNOEA [None]
  - RASH ERYTHEMATOUS [None]
